FAERS Safety Report 5993782-9 (Version None)
Quarter: 2008Q4

REPORT INFORMATION
  Report Type: 
  Country: None (occurrence: None)
  Receive Date: 20081212
  Receipt Date: 20081204
  Transmission Date: 20090506
  Serious: Yes (Death, Hospitalization)
  Sender: FDA-Public Use
  Company Number: CH-ELI_LILLY_AND_COMPANY-CH200812001522

PATIENT
  Age: 42 Year
  Sex: Male

DRUGS (4)
  1. ALIMTA [Suspect]
     Indication: NON-SMALL CELL LUNG CANCER METASTATIC
     Dosage: 1000 MG, UNKNOWN
     Route: 042
     Dates: start: 20081002
  2. FOLIC ACID [Concomitant]
     Indication: PROPHYLAXIS
     Dosage: 1 MG, UNKNOWN
     Route: 048
  3. TEMESTA [Concomitant]
     Dosage: 1 MG, DAILY (1/D)
     Route: 048
  4. NEXIUM [Concomitant]
     Dosage: 40 MG, DAILY (1/D)
     Route: 048
     Dates: start: 20081001

REACTIONS (8)
  - ABDOMINAL PAIN [None]
  - DYSPNOEA [None]
  - LIVER INJURY [None]
  - MALIGNANT NEOPLASM PROGRESSION [None]
  - MUCOSAL INFLAMMATION [None]
  - OESOPHAGEAL CANDIDIASIS [None]
  - PANCYTOPENIA [None]
  - RENAL FAILURE ACUTE [None]
